FAERS Safety Report 10544215 (Version 1)
Quarter: 2014Q4

REPORT INFORMATION
  Report Type: Spontaneous
  Country: US (occurrence: None)
  Receive Date: 20141024
  Receipt Date: 20141024
  Transmission Date: 20150529
  Serious: No
  Sender: FDA-Public Use
  Company Number: None

PATIENT
  Age: 64 Year
  Sex: Male

DRUGS (14)
  1. HYDROCODONE/ACETAMINOP [Concomitant]
  2. LEVOTHYROXIN [Concomitant]
     Active Substance: LEVOTHYROXINE
  3. AMLODIPINE BESYLATE. [Concomitant]
     Active Substance: AMLODIPINE BESYLATE
  4. HYDROCODONE/APAP [Concomitant]
     Active Substance: ACETAMINOPHEN\HYDROCODONE
  5. BACLOFEN. [Concomitant]
     Active Substance: BACLOFEN
  6. HYDROCHLOROTHIAZIDE. [Concomitant]
     Active Substance: HYDROCHLOROTHIAZIDE
  7. DIPHENDOXYLATE/ATROPINE [Concomitant]
  8. AFINITOR [Suspect]
     Active Substance: EVEROLIMUS
     Indication: RENAL CANCER
     Route: 048
     Dates: start: 20140726, end: 20141022
  9. LISINOPRIL. [Concomitant]
     Active Substance: LISINOPRIL
  10. OMEPRAZOLE. [Concomitant]
     Active Substance: OMEPRAZOLE
  11. INLHYTA [Concomitant]
  12. IMODIUM A-D [Concomitant]
     Active Substance: LOPERAMIDE HYDROCHLORIDE
  13. SUTENT [Concomitant]
     Active Substance: SUNITINIB MALATE
  14. FENTANYL. [Concomitant]
     Active Substance: FENTANYL

REACTIONS (4)
  - Therapy change [None]
  - Acne [None]
  - Drug ineffective [None]
  - Stomatitis [None]

NARRATIVE: CASE EVENT DATE: 20141022
